FAERS Safety Report 18860611 (Version 2)
Quarter: 2021Q4

REPORT INFORMATION
  Report Type: Report from Study
  Country: PK (occurrence: PK)
  Receive Date: 20210208
  Receipt Date: 20211115
  Transmission Date: 20220303
  Serious: Yes (Death, Other)
  Sender: FDA-Public Use
  Company Number: PK-PFIZER INC-2021116198

PATIENT

DRUGS (11)
  1. PREDNISOLONE [Suspect]
     Active Substance: PREDNISOLONE
     Indication: Acute promyelocytic leukaemia
     Dosage: 1 MG/KG, DAILY (Q 8 H PO; DAYS 1-10)
     Route: 048
  2. METHOTREXATE SODIUM [Suspect]
     Active Substance: METHOTREXATE SODIUM
     Indication: Acute promyelocytic leukaemia
     Dosage: 15 MG/M2, DAILY (Q WEEKLY PO; DAYS 15-90)
     Route: 048
  3. DAUNORUBICIN [Suspect]
     Active Substance: DAUNORUBICIN
     Indication: Acute promyelocytic leukaemia
     Dosage: 42 MG/M2, CYCLIC (OVER 15 MIN IV; DAYS 2, 4, 6, 8)
     Route: 042
  4. MERCAPTOPURINE [Suspect]
     Active Substance: MERCAPTOPURINE
     Indication: Acute promyelocytic leukaemia
     Dosage: 50 MG/M2, 1X/DAY (Q 24 H PO; DAYS 15-90)
     Route: 048
  5. TRETINOIN [Suspect]
     Active Substance: TRETINOIN
     Indication: Acute promyelocytic leukaemia
     Dosage: 45 MG/M2, DAILY (Q 12 H PO; DAYS 1-36)
     Route: 048
  6. TRETINOIN [Suspect]
     Active Substance: TRETINOIN
     Dosage: 45 MG/M2, DAILY (Q 12 H PO; DAYS 1-28)
     Route: 048
  7. TRETINOIN [Suspect]
     Active Substance: TRETINOIN
     Dosage: 45 MG/M2, DAILY (Q 12 H PO; DAYS 1-7, 15-21, 29-35)
     Route: 048
  8. TRETINOIN [Suspect]
     Active Substance: TRETINOIN
     Dosage: 45 MG/M2, DAILY (Q 12 H PO; DAYS 1-14)
     Route: 048
  9. ARSENIC TRIOXIDE [Suspect]
     Active Substance: ARSENIC TRIOXIDE
     Indication: Acute promyelocytic leukaemia
     Dosage: 0.15 MG/KG, DAILY (OVER 2 H IV; DAYS 9-36)
     Route: 042
  10. ARSENIC TRIOXIDE [Suspect]
     Active Substance: ARSENIC TRIOXIDE
     Dosage: 0.15 MG/KG, DAILY (OVER 2 H IV; DAYS 1-28)
     Route: 042
  11. ARSENIC TRIOXIDE [Suspect]
     Active Substance: ARSENIC TRIOXIDE
     Dosage: 0.15 MG/KG, DAILY (OVER 2 H IV; DAYS 1-5, 8-12, 15-19, 22-26, 29-33)
     Route: 042

REACTIONS (1)
  - Differentiation syndrome [Fatal]
